FAERS Safety Report 18661873 (Version 1)
Quarter: 2020Q4

REPORT INFORMATION
  Report Type: Spontaneous
  Country: GB (occurrence: GB)
  Receive Date: 20201224
  Receipt Date: 20201224
  Transmission Date: 20210114
  Serious: Yes (Life-Threatening)
  Sender: FDA-Public Use
  Company Number: GB-TEVA-2020-GB-1860211

PATIENT
  Age: 67 Year
  Sex: Male
  Weight: 114.3 kg

DRUGS (1)
  1. ARIPIPRAZOLE. [Suspect]
     Active Substance: ARIPIPRAZOLE
     Dosage: 5 MG
     Route: 048
     Dates: start: 20190301

REACTIONS (3)
  - Libido increased [Not Recovered/Not Resolved]
  - Compulsive shopping [Not Recovered/Not Resolved]
  - Binge eating [Not Recovered/Not Resolved]

NARRATIVE: CASE EVENT DATE: 20190301
